FAERS Safety Report 8425731-8 (Version None)
Quarter: 2012Q2

REPORT INFORMATION
  Report Type: 
  Country: None (occurrence: None)
  Receive Date: 20120611
  Receipt Date: 20120607
  Transmission Date: 20120825
  Serious: Yes (Hospitalization)
  Sender: FDA-Public Use
  Company Number: PHHY2012IT048669

PATIENT
  Sex: Male

DRUGS (7)
  1. LASIX [Concomitant]
  2. BISOPROLOL FUMARATE [Concomitant]
  3. LIMPIDEX [Concomitant]
  4. ASPIRIN [Concomitant]
  5. IMATINIB MESYLATE [Suspect]
     Indication: GASTROINTESTINAL STROMAL TUMOUR
     Dosage: 400 MG, DAILY
     Dates: start: 20041022
  6. AVODART [Concomitant]
  7. TELMISARTAN [Concomitant]

REACTIONS (2)
  - BLADDER CANCER [None]
  - NEOPLASM MALIGNANT [None]
